FAERS Safety Report 9918491 (Version 1)
Quarter: 2014Q1

REPORT INFORMATION
  Report Type: Spontaneous
  Country: US (occurrence: US)
  Receive Date: 20140224
  Receipt Date: 20140224
  Transmission Date: 20141002
  Serious: No
  Sender: FDA-Public Use
  Company Number: US-BIOGENIDEC-2014BI014392

PATIENT
  Sex: Male

DRUGS (7)
  1. TECFIDERA [Suspect]
     Indication: MULTIPLE SCLEROSIS
     Route: 048
     Dates: start: 20131230
  2. LIPITOR [Concomitant]
  3. B12 [Concomitant]
  4. COLCRYS [Concomitant]
  5. ZOLOFT [Concomitant]
  6. MODAFINIL [Concomitant]
  7. TESTIM [Concomitant]

REACTIONS (3)
  - Depression [Unknown]
  - Intentional underdose [Unknown]
  - Flushing [Not Recovered/Not Resolved]
